FAERS Safety Report 14379247 (Version 1)
Quarter: 2018Q1

REPORT INFORMATION
  Report Type: Spontaneous
  Country: US (occurrence: US)
  Receive Date: 20180112
  Receipt Date: 20180112
  Transmission Date: 20180509
  Serious: No
  Sender: FDA-Public Use
  Company Number: US-DRREDDYS-USA/USA/17/0091656

PATIENT
  Age: 62 Year
  Sex: Female
  Weight: 78.01 kg

DRUGS (1)
  1. IBUPROFEN. [Suspect]
     Active Substance: IBUPROFEN
     Indication: JOINT DISLOCATION
     Route: 048

REACTIONS (2)
  - Renal disorder [Recovered/Resolved]
  - Dysuria [Recovered/Resolved]
